FAERS Safety Report 8077243-1 (Version None)
Quarter: 2012Q1

REPORT INFORMATION
  Report Type: 
  Country: None (occurrence: None)
  Receive Date: 20120127
  Receipt Date: 20120118
  Transmission Date: 20120608
  Serious: Yes (Death)
  Sender: FDA-Public Use
  Company Number: CA-ROCHE-1031872

PATIENT
  Sex: Male
  Weight: 79.8 kg

DRUGS (6)
  1. METHOTREXATE [Concomitant]
  2. DOMPERIDONE [Concomitant]
  3. MABTHERA [Suspect]
     Indication: RHEUMATOID ARTHRITIS
     Dosage: DAY1 AND DAY 15, INTERRUPTED.
     Route: 042
     Dates: start: 20101118, end: 20111221
  4. FOLIC ACID [Concomitant]
  5. PANTOPRAZOLE [Concomitant]
  6. ASPIRIN [Concomitant]

REACTIONS (1)
  - MYOCARDIAL INFARCTION [None]
